FAERS Safety Report 4676807-2 (Version None)
Quarter: 2005Q2

REPORT INFORMATION
  Report Type: 
  Country: None (occurrence: None)
  Receive Date: 20050527
  Receipt Date: 20050131
  Transmission Date: 20051028
  Serious: Yes (Death, Other)
  Sender: FDA-Public Use
  Company Number: US-MERCK-0502USA00102

PATIENT
  Age: 59 Year
  Sex: Female
  Weight: 66 kg

DRUGS (40)
  1. VIOXX [Suspect]
     Indication: ARTHRITIS
     Route: 048
     Dates: start: 20010502, end: 20030101
  2. VIOXX [Suspect]
     Route: 048
     Dates: start: 20010502, end: 20030101
  3. VIOXX [Suspect]
     Indication: OSTEOPOROSIS
     Route: 048
     Dates: start: 20010502, end: 20030101
  4. VIOXX [Suspect]
     Route: 048
     Dates: start: 20010502, end: 20030101
  5. AZMACORT [Concomitant]
     Indication: ASTHMA
     Route: 065
  6. ALBUTEROL [Concomitant]
     Indication: ASTHMA
     Route: 065
  7. AMBIEN [Concomitant]
     Indication: INSOMNIA
     Route: 065
  8. AMITRIPTYLINE HYDROCHLORIDE [Concomitant]
     Indication: DEPRESSION
     Route: 065
  9. ATROVENT [Concomitant]
     Indication: ASTHMA
     Route: 065
  10. BIAXIN [Concomitant]
     Indication: RESPIRATORY TRACT INFECTION
     Route: 065
  11. BIDEX [Concomitant]
     Indication: RESPIRATORY TRACT INFECTION
     Route: 065
  12. CYCLOBENZAPRINE HYDROCHLORIDE [Concomitant]
     Indication: OSTEOPOROSIS POSTMENOPAUSAL
     Route: 065
  13. DOCUSATE CALCIUM [Concomitant]
     Indication: FAECES HARD
     Route: 065
  14. DOCUSATE CALCIUM [Concomitant]
     Indication: CONSTIPATION
     Route: 065
  15. DURAGESIC-100 [Concomitant]
     Indication: OSTEOPOROSIS POSTMENOPAUSAL
     Route: 065
  16. FERROUS SULFATE [Concomitant]
     Indication: IRON DEFICIENCY ANAEMIA
     Route: 065
  17. FLOVENT [Concomitant]
     Indication: ASTHMA
     Route: 065
  18. FLUOXETINE [Concomitant]
     Indication: DEPRESSION
     Route: 065
  19. FOSAMAX [Concomitant]
     Indication: OSTEOPOROSIS POSTMENOPAUSAL
     Route: 065
  20. FUROSEMIDE [Concomitant]
     Indication: OEDEMA
     Route: 065
     Dates: start: 20010502, end: 20030101
  21. ACETAMINOPHEN AND HYDROCODONE BITARTRATE [Concomitant]
     Indication: OSTEOPOROSIS POSTMENOPAUSAL
     Route: 065
     Dates: start: 20010509, end: 20030101
  22. HYDROXYCHLOROQUINE SULFATE [Concomitant]
     Indication: ARTHRITIS
     Route: 065
     Dates: start: 20011217, end: 20030101
  23. LEVOXYL [Concomitant]
     Indication: THYROID DISORDER
     Route: 065
  24. MAXAIR [Concomitant]
     Indication: ASTHMA
     Route: 065
  25. MIACALCIN [Concomitant]
     Indication: OSTEOPOROSIS POSTMENOPAUSAL
     Route: 065
  26. NYSTATIN [Concomitant]
     Indication: FUNGAL INFECTION
     Route: 065
  27. PHENERGAN TABLETS/SUPPOSITORIES [Concomitant]
     Indication: HYPERSENSITIVITY
     Route: 065
  28. POTASSIUM (UNSPECIFIED) [Concomitant]
     Indication: HYPOKALAEMIA
     Route: 065
  29. PREDNISONE [Concomitant]
     Indication: OSTEOPOROSIS POSTMENOPAUSAL
     Route: 065
  30. PREMARIN [Concomitant]
     Indication: MENOPAUSAL SYMPTOMS
     Route: 065
     Dates: start: 20010510, end: 20021128
  31. PRILOSEC [Concomitant]
     Indication: DYSPEPSIA
     Route: 065
  32. PROMETHAZINE [Concomitant]
     Indication: HYPERSENSITIVITY
     Route: 065
  33. PROZAC [Concomitant]
     Indication: DEPRESSION
     Route: 065
  34. SYNTHROID [Concomitant]
     Indication: THYROID DISORDER
     Route: 065
  35. TEQUIN [Concomitant]
     Indication: RESPIRATORY TRACT INFECTION
     Route: 065
  36. TIZANIDINE HYDROCHLORIDE [Concomitant]
     Indication: MUSCLE CONTRACTIONS INVOLUNTARY
     Route: 065
     Dates: start: 20021111, end: 20030101
  37. Z-PAK [Concomitant]
     Indication: RESPIRATORY TRACT INFECTION
     Route: 065
  38. ZOCOR [Concomitant]
     Indication: BLOOD CHOLESTEROL INCREASED
     Route: 065
     Dates: start: 20010510, end: 20030101
  39. ZYRTEC [Concomitant]
     Route: 065
  40. PREVACID [Concomitant]
     Indication: DYSPEPSIA
     Route: 065

REACTIONS (21)
  - ASTHMA [None]
  - CARDIAC ARREST [None]
  - CARDIAC FAILURE CONGESTIVE [None]
  - CONSTIPATION [None]
  - DEPRESSION [None]
  - DYSPEPSIA [None]
  - FAECES HARD [None]
  - FUNGAL INFECTION [None]
  - HYPERLIPIDAEMIA [None]
  - HYPERSENSITIVITY [None]
  - HYPERTENSION [None]
  - HYPOKALAEMIA [None]
  - INSOMNIA [None]
  - IRON DEFICIENCY ANAEMIA [None]
  - MUSCLE CONTRACTIONS INVOLUNTARY [None]
  - MUSCLE SPASMS [None]
  - MYOCARDIAL INFARCTION [None]
  - OEDEMA [None]
  - PAIN [None]
  - RESPIRATORY TRACT INFECTION [None]
  - SUDDEN CARDIAC DEATH [None]
